FAERS Safety Report 4288840-3 (Version None)
Quarter: 2004Q1

REPORT INFORMATION
  Report Type: 
  Country: None (occurrence: None)
  Receive Date: 20040209
  Receipt Date: 20031206
  Transmission Date: 20041129
  Serious: Yes (Other)
  Sender: FDA-Public Use
  Company Number: PHEH2003US11231

PATIENT
  Age: 12 Year
  Sex: Male
  Weight: 47 kg

DRUGS (1)
  1. GLEEVEC [Suspect]
     Indication: CHRONIC MYELOID LEUKAEMIA
     Dosage: 400 MG, QD
     Route: 048
     Dates: start: 20020715, end: 20031125

REACTIONS (5)
  - ATRIOVENTRICULAR BLOCK SECOND DEGREE [None]
  - BONE MARROW TRANSPLANT [None]
  - CARDIAC MURMUR [None]
  - HEART RATE IRREGULAR [None]
  - VENTRICULAR HYPERTROPHY [None]
